FAERS Safety Report 4773078-3 (Version None)
Quarter: 2005Q3

REPORT INFORMATION
  Report Type: 
  Country: None (occurrence: None)
  Receive Date: 20050916
  Receipt Date: 20050906
  Transmission Date: 20060218
  Serious: Yes (Other)
  Sender: FDA-Public Use
  Company Number: 23572

PATIENT
  Age: 72 Year
  Sex: Female

DRUGS (8)
  1. NIASPAN [Suspect]
     Dosage: 1000 ,G QJS [P
     Route: 053
     Dates: start: 20041201, end: 20050801
  2. ZETIA [Suspect]
     Indication: BLOOD CHOLESTEROL INCREASED
     Dosage: 10 MG PO
     Route: 048
     Dates: start: 20041201, end: 20050801
  3. FOSAMAX /ITA/ [Concomitant]
  4. ATENOLOL [Concomitant]
  5. DIOVAN [Concomitant]
  6. GLUCOSAMINE CHONDROITIN [Concomitant]
  7. CALTRATE [Concomitant]
  8. ASPIRIN [Concomitant]

REACTIONS (4)
  - ASTHENIA [None]
  - FALL [None]
  - REFUSAL OF TREATMENT BY PATIENT [None]
  - RHABDOMYOLYSIS [None]
